FAERS Safety Report 5166800-8 (Version None)
Quarter: 2006Q4

REPORT INFORMATION
  Report Type: 
  Country: None (occurrence: None)
  Receive Date: 20061204
  Receipt Date: 20061204
  Transmission Date: 20070319
  Serious: Yes (Life-Threatening, Hospitalization, Disabling)
  Sender: FDA-Public Use
  Company Number: None

PATIENT
  Age: 59 Year
  Sex: Female
  Weight: 104.3273 kg

DRUGS (2)
  1. OMNICEF [Suspect]
     Indication: COUGH
     Dosage: 300 MG  TWICE DAILY  PO
     Route: 048
     Dates: start: 20060203, end: 20060208
  2. OMNICEF [Suspect]

REACTIONS (9)
  - ARTHRALGIA [None]
  - HYPOAESTHESIA [None]
  - HYPOREFLEXIA [None]
  - INSOMNIA [None]
  - JOINT RANGE OF MOTION DECREASED [None]
  - MUSCLE ATROPHY [None]
  - PAIN [None]
  - POLYNEUROPATHY [None]
  - RASH [None]
